FAERS Safety Report 5966866-9 (Version None)
Quarter: 2008Q4

REPORT INFORMATION
  Report Type: 
  Country: None (occurrence: None)
  Receive Date: 20081119
  Receipt Date: 20080824
  Transmission Date: 20090506
  Serious: No
  Sender: FDA-Public Use
  Company Number: WAES 0808USA04511

PATIENT
  Age: 65 Year
  Sex: Male

DRUGS (2)
  1. JANUVIA [Suspect]
     Dosage: 25 MG/PO ; 25 MG/PO
     Route: 048
     Dates: start: 20071101, end: 20080801
  2. JANUVIA [Suspect]
     Dosage: 25 MG/PO ; 25 MG/PO
     Route: 048
     Dates: start: 20080819, end: 20080819

REACTIONS (6)
  - COUGH [None]
  - DYSPNOEA [None]
  - EYE SWELLING [None]
  - PHARYNGEAL OEDEMA [None]
  - SWELLING FACE [None]
  - THERAPEUTIC RESPONSE DECREASED [None]
